FAERS Safety Report 9031397 (Version 1)
Quarter: 2013Q1

REPORT INFORMATION
  Report Type: Report from Study
  Country: DE (occurrence: DE)
  Receive Date: 20130124
  Receipt Date: 20130124
  Transmission Date: 20140127
  Serious: Yes (Death)
  Sender: FDA-Public Use
  Company Number: PHHY2007DE011982

PATIENT
  Age: 66 Year
  Sex: Male

DRUGS (2)
  1. SANDOSTATIN LAR [Suspect]
  2. INTERFERON ALFA [Suspect]

REACTIONS (2)
  - Malignant neoplasm progression [Fatal]
  - Weight decreased [Fatal]
